FAERS Safety Report 24011173 (Version 2)
Quarter: 2024Q3

REPORT INFORMATION
  Report Type: Report from Study
  Country: DE (occurrence: DE)
  Receive Date: 20240625
  Receipt Date: 20240701
  Transmission Date: 20241017
  Serious: Yes (Hospitalization)
  Sender: KYOWA
  Company Number: DE-KYOWAKIRIN-2024KK015082

PATIENT

DRUGS (3)
  1. BUROSUMAB [Suspect]
     Active Substance: BUROSUMAB
     Indication: Hereditary hypophosphataemic rickets
     Dosage: 10 MG
     Route: 058
     Dates: start: 20240606
  2. BUROSUMAB [Suspect]
     Active Substance: BUROSUMAB
     Dosage: 10 MG
     Route: 058
     Dates: start: 20220706
  3. BUROSUMAB [Suspect]
     Active Substance: BUROSUMAB
     Dosage: 10 MG
     Route: 058
     Dates: start: 20240523, end: 20240523

REACTIONS (3)
  - Pyrexia [Recovered/Resolved]
  - Vomiting [Recovered/Resolved]
  - Diarrhoea [Recovered/Resolved]

NARRATIVE: CASE EVENT DATE: 20240601
